FAERS Safety Report 21129117 (Version 1)
Quarter: 2022Q3

REPORT INFORMATION
  Report Type: Spontaneous
  Country: US (occurrence: US)
  Receive Date: 20220725
  Receipt Date: 20220725
  Transmission Date: 20221027
  Serious: Yes (Other)
  Sender: FDA-Public Use
  Company Number: US-ALLERGAN-2224087US

PATIENT

DRUGS (1)
  1. ARMOUR THYROID [Suspect]
     Active Substance: THYROID, PORCINE
     Indication: Product used for unknown indication
     Dosage: UNK
     Dates: start: 2007

REACTIONS (5)
  - Cellulitis [Unknown]
  - Intra-abdominal fluid collection [Unknown]
  - Tri-iodothyronine free decreased [Unknown]
  - Thyroxine free decreased [Unknown]
  - Drug ineffective [Unknown]
